FAERS Safety Report 8370557-7 (Version None)
Quarter: 2012Q2

REPORT INFORMATION
  Report Type: 
  Country: None (occurrence: None)
  Receive Date: 20120518
  Receipt Date: 20120509
  Transmission Date: 20120825
  Serious: Yes (Hospitalization)
  Sender: FDA-Public Use
  Company Number: IT-ASTRAZENECA-2012SE29921

PATIENT
  Age: 26596 Day
  Sex: Male

DRUGS (11)
  1. CLEXANE T [Suspect]
     Indication: THROMBOSIS PROPHYLAXIS
     Dosage: ONCE SINGLE ADMINISTRATION 8000 UI AXA/0.8 ML INJECTAL SOLUTION
     Route: 058
     Dates: start: 20120411, end: 20120411
  2. FLECTADOL [Suspect]
     Indication: THROMBOSIS PROPHYLAXIS
     Route: 042
     Dates: start: 20120411
  3. CEFAZOLIN [Concomitant]
     Indication: URINARY TRACT INFECTION
     Route: 048
     Dates: start: 20120409
  4. POTASSIUM CANRENOATE [Concomitant]
     Dates: start: 20120412
  5. ENOXAPARIN SODIUM [Suspect]
     Indication: THROMBOSIS PROPHYLAXIS
     Dosage: 1 DF DAILY 4000 UI INJECTAL SOLUTION
     Route: 058
     Dates: start: 20120412, end: 20120416
  6. MADOPAR [Concomitant]
     Indication: PARKINSONISM
     Dosage: 200 MG + 50 MG TABLET 1DF
     Route: 048
  7. BRILIQUE [Suspect]
     Indication: THROMBOSIS PROPHYLAXIS
     Route: 048
     Dates: start: 20120409, end: 20120416
  8. PRILOSEC [Concomitant]
     Route: 042
  9. ACETAMINOPHEN [Concomitant]
     Dosage: 10 MG/ML SOLUTION FOR INFUSION
     Route: 041
  10. RAMIPRIL [Concomitant]
     Route: 048
     Dates: start: 20120415
  11. LASIX [Concomitant]
     Dosage: 20 MG/2 ML INJECTAL SOLUTION
     Route: 042

REACTIONS (3)
  - ANAEMIA [None]
  - HAEMATURIA [None]
  - PHARYNGEAL HAEMORRHAGE [None]
